FAERS Safety Report 7748942-3 (Version None)
Quarter: 2011Q3

REPORT INFORMATION
  Report Type: 
  Country: None (occurrence: None)
  Receive Date: 20110909
  Receipt Date: 20110902
  Transmission Date: 20111222
  Serious: Yes (Hospitalization)
  Sender: FDA-Public Use
  Company Number: 2011SP031793

PATIENT
  Age: 54 Year
  Sex: Female
  Weight: 61.3 kg

DRUGS (2)
  1. TRAZODONE HYDROCHLORIDE [Suspect]
     Indication: DEPRESSION
     Dosage: 50 MG; ;PO
     Route: 048
     Dates: start: 20090311, end: 20110125
  2. REMERON [Suspect]
     Indication: DEPRESSION
     Dosage: 15 MG; TID; PO
     Route: 048
     Dates: start: 20100204, end: 20110220

REACTIONS (4)
  - SENSORY DISTURBANCE [None]
  - CEREBRAL VASOCONSTRICTION [None]
  - HEMIPARESIS [None]
  - HEADACHE [None]
